FAERS Safety Report 9838582 (Version 1)
Quarter: 2014Q1

REPORT INFORMATION
  Report Type: Spontaneous
  Country: US (occurrence: US)
  Receive Date: 20140123
  Receipt Date: 20140123
  Transmission Date: 20141002
  Serious: Yes (Hospitalization, Other)
  Sender: FDA-Public Use
  Company Number: US-PFIZER INC-2014020083

PATIENT
  Age: 36 Year
  Sex: Male
  Weight: 125 kg

DRUGS (3)
  1. DILANTIN-125 [Suspect]
     Dosage: UNK, 3X/DAY (300MG IN MORNING, 200MG IN NOON AND 200MG IN NIGHT)
     Dates: start: 200401
  2. COUMADINE [Interacting]
     Dosage: UNK
  3. AMLODIPINE [Concomitant]
     Indication: HYPERTENSION
     Dosage: 5 MG, DAILY

REACTIONS (2)
  - Drug interaction [Recovered/Resolved]
  - Coma [Recovered/Resolved]
